FAERS Safety Report 7529282-4 (Version None)
Quarter: 2011Q2

REPORT INFORMATION
  Report Type: 
  Country: None (occurrence: None)
  Receive Date: 20110607
  Receipt Date: 20110314
  Transmission Date: 20111010
  Serious: No
  Sender: FDA-Public Use
  Company Number: US-TYCO HEALTHCARE/MALLINCKRODT-T201100627

PATIENT
  Sex: Female

DRUGS (17)
  1. URSODIOL [Concomitant]
     Dosage: UNK
  2. ZOLOFT [Concomitant]
     Dosage: UNK
  3. COLACE [Concomitant]
  4. NEXIUM [Concomitant]
     Dosage: UNK
  5. CALCITROL                          /00508501/ [Concomitant]
     Dosage: UNK
  6. LASIX [Concomitant]
     Dosage: UNK
  7. FENTANYL [Concomitant]
     Dosage: UNK
     Dates: start: 20110101, end: 20110201
  8. EXALGO [Suspect]
     Indication: NECK PAIN
     Dosage: 12 MG, QD
     Dates: start: 20110228, end: 20110301
  9. AMBIEN [Concomitant]
     Dosage: UNK
  10. REQUIP [Concomitant]
     Dosage: UNK
  11. VOLTAREN [Concomitant]
     Dosage: UNK
  12. CLONIDINE [Concomitant]
     Dosage: UNK
  13. FERROUS SULFATE TAB [Concomitant]
     Dosage: UNK
  14. LOPRESSOR [Concomitant]
     Dosage: UNK
  15. VITAMIN A [Concomitant]
     Dosage: UNK
  16. DOXEPIN [Concomitant]
     Dosage: UNK
  17. XYLOCAINE [Concomitant]
     Dosage: UNK

REACTIONS (1)
  - STOMATITIS [None]
